FAERS Safety Report 18791019 (Version 2)
Quarter: 2021Q3

REPORT INFORMATION
  Report Type: Report from Study
  Country: US (occurrence: US)
  Receive Date: 20210126
  Receipt Date: 20210721
  Transmission Date: 20211014
  Serious: Yes (Other)
  Sender: FDA-Public Use
  Company Number: US-TAKEDA-US201914613

PATIENT
  Age: 44 Year
  Sex: Female

DRUGS (1)
  1. CUVITRU [Suspect]
     Active Substance: HUMAN IMMUNOGLOBULIN G
     Indication: PRIMARY IMMUNODEFICIENCY SYNDROME
     Dosage: 30 GRAM, Q2WEEKS
     Route: 065

REACTIONS (3)
  - Venous occlusion [Unknown]
  - Respiratory tract congestion [Unknown]
  - Rhinitis [Unknown]

NARRATIVE: CASE EVENT DATE: 20190502
